FAERS Safety Report 21350725 (Version 1)
Quarter: 2022Q3

REPORT INFORMATION
  Report Type: Spontaneous
  Country: US (occurrence: US)
  Receive Date: 20220919
  Receipt Date: 20220919
  Transmission Date: 20221027
  Serious: Yes (Other)
  Sender: FDA-Public Use
  Company Number: US-PROGENICS PHARMACEUTICALS/LANTHEUS HOLDINGS-LMI-2021-01032

PATIENT
  Sex: Female

DRUGS (2)
  1. AZEDRA [Suspect]
     Active Substance: IOBENGUANE I-131
     Indication: Phaeochromocytoma
     Dosage: UNK
  2. AZEDRA [Suspect]
     Active Substance: IOBENGUANE I-131
     Indication: Paraganglion neoplasm

REACTIONS (1)
  - Pancytopenia [Unknown]
